FAERS Safety Report 6125183-7 (Version None)
Quarter: 2009Q1

REPORT INFORMATION
  Report Type: 
  Country: None (occurrence: None)
  Receive Date: 20090318
  Receipt Date: 20090306
  Transmission Date: 20090719
  Serious: Yes (Hospitalization, Other)
  Sender: FDA-Public Use
  Company Number: 232482K08USA

PATIENT
  Age: 62 Year
  Sex: Female

DRUGS (8)
  1. REBIF [Suspect]
     Indication: MULTIPLE SCLEROSIS
     Dosage: 44 MCG, 3 IN 1 WEEKS, SUBCUTANEOUS
     Route: 058
     Dates: start: 20060118
  2. XANAX [Concomitant]
  3. LEXAPRO [Concomitant]
  4. FLEXERIL [Concomitant]
  5. JANUVIA (DRUG USED IN DIABETES) [Concomitant]
  6. INSULIN (INSULIN /00030501/) [Concomitant]
  7. UNSPECIFIED ASTHMA MEDICATION(ANTI-ASTHAMTICS) [Concomitant]
  8. OXYGEN (OXYGEN) [Concomitant]

REACTIONS (8)
  - ANKLE FRACTURE [None]
  - ARTHROPATHY [None]
  - BLOOD GLUCOSE INCREASED [None]
  - FALL [None]
  - MUSCULAR WEAKNESS [None]
  - POST PROCEDURAL HAEMORRHAGE [None]
  - SUTURE RUPTURE [None]
  - WRIST FRACTURE [None]
